FAERS Safety Report 13794497 (Version 6)
Quarter: 2018Q2

REPORT INFORMATION
  Report Type: Spontaneous
  Country: US (occurrence: US)
  Receive Date: 20170726
  Receipt Date: 20180620
  Transmission Date: 20180711
  Serious: No
  Sender: FDA-Public Use
  Company Number: US-TEVA-787890ACC

PATIENT

DRUGS (3)
  1. NORVIR [Interacting]
     Active Substance: RITONAVIR
     Route: 065
  2. FLONASE [Interacting]
     Active Substance: FLUTICASONE PROPIONATE
     Route: 065
  3. PREDNISONE. [Suspect]
     Active Substance: PREDNISONE
     Route: 065

REACTIONS (2)
  - Adverse event [Unknown]
  - Drug interaction [Unknown]
